FAERS Safety Report 8380265-4 (Version None)
Quarter: 2012Q2

REPORT INFORMATION
  Report Type: 
  Country: None (occurrence: None)
  Receive Date: 20120523
  Receipt Date: 20120518
  Transmission Date: 20120825
  Serious: Yes (Other)
  Sender: FDA-Public Use
  Company Number: PHEH2012US010410

PATIENT
  Sex: Female

DRUGS (3)
  1. DIOVAN [Suspect]
     Dosage: 80 MG, UNK
  2. ASPIRIN [Concomitant]
     Dosage: 1 DF, DAILY
  3. DIOVAN [Suspect]
     Dosage: 40 MG, UNK

REACTIONS (6)
  - CEREBROVASCULAR ACCIDENT [None]
  - HYPOAESTHESIA [None]
  - BURNING SENSATION [None]
  - POLLAKIURIA [None]
  - TONGUE DISORDER [None]
  - PARAESTHESIA [None]
